FAERS Safety Report 7597312-X (Version None)
Quarter: 2011Q3

REPORT INFORMATION
  Report Type: 
  Country: None (occurrence: None)
  Receive Date: 20110708
  Receipt Date: 20110427
  Transmission Date: 20111222
  Serious: No
  Sender: FDA-Public Use
  Company Number: US-GLAXOSMITHKLINE-A0924757A

PATIENT
  Age: 86 Year
  Sex: Male

DRUGS (5)
  1. LOPRESSOR [Concomitant]
  2. DYAZIDE [Concomitant]
  3. PROTONIX [Concomitant]
  4. VITAMIN TAB [Concomitant]
  5. FLOVENT [Suspect]
     Indication: SARCOIDOSIS
     Dosage: 1PUFF TWICE PER DAY
     Route: 055
     Dates: start: 20060101

REACTIONS (2)
  - DYSPNOEA [None]
  - PRODUCT QUALITY ISSUE [None]
